FAERS Safety Report 26030636 (Version 1)
Quarter: 2025Q4

REPORT INFORMATION
  Report Type: Spontaneous
  Country: US (occurrence: US)
  Receive Date: 20251112
  Receipt Date: 20251112
  Transmission Date: 20260117
  Serious: Yes (Hospitalization)
  Sender: ROCHE
  Company Number: US-ROCHE-10000426016

PATIENT
  Age: 36 Year
  Sex: Male

DRUGS (1)
  1. LUNSUMIO [Suspect]
     Active Substance: MOSUNETUZUMAB-AXGB
     Indication: Follicular lymphoma
     Route: 065

REACTIONS (3)
  - Cytokine release syndrome [Recovering/Resolving]
  - Headache [Recovering/Resolving]
  - Nasopharyngitis [Recovering/Resolving]
